FAERS Safety Report 18615428 (Version 1)
Quarter: 2020Q4

REPORT INFORMATION
  Report Type: Spontaneous
  Country: US (occurrence: US)
  Receive Date: 20201215
  Receipt Date: 20201215
  Transmission Date: 20210114
  Serious: No
  Sender: FDA-Public Use
  Company Number: US-AMGEN-USASP2020200320

PATIENT
  Age: 52 Year
  Sex: Female

DRUGS (3)
  1. OTEZLA [Suspect]
     Active Substance: APREMILAST
     Indication: PSORIASIS
     Dosage: 30 MILLIGRAM, BID
     Route: 048
     Dates: start: 20200930
  2. AMLODIPINE [Concomitant]
     Active Substance: AMLODIPINE BESYLATE
     Dosage: UNK
  3. TERBINAFINE. [Concomitant]
     Active Substance: TERBINAFINE
     Dosage: UNK

REACTIONS (1)
  - Infection [Unknown]

NARRATIVE: CASE EVENT DATE: 20201204
